FAERS Safety Report 19243136 (Version 1)
Quarter: 2021Q2

REPORT INFORMATION
  Report Type: Spontaneous
  Country: US (occurrence: US)
  Receive Date: 20210511
  Receipt Date: 20210511
  Transmission Date: 20210717
  Serious: No
  Sender: FDA-Public Use
  Company Number: US-SA-2021SA154671

PATIENT
  Sex: Female

DRUGS (1)
  1. KEVZARA [Suspect]
     Active Substance: SARILUMAB
     Indication: RHEUMATOID ARTHRITIS
     Dosage: 200 MG, QOW
     Route: 058

REACTIONS (6)
  - Paraesthesia [Unknown]
  - Condition aggravated [Unknown]
  - Contusion [Unknown]
  - Unevaluable event [Unknown]
  - Cardiac discomfort [Unknown]
  - Hyperhidrosis [Unknown]
